FAERS Safety Report 17104919 (Version 1)
Quarter: 2019Q4

REPORT INFORMATION
  Report Type: Spontaneous
  Country: US (occurrence: US)
  Receive Date: 20191107
  Receipt Date: 20191107
  Transmission Date: 20200122
  Serious: No
  Sender: FDA-Public Use
  Company Number: None

PATIENT

DRUGS (2)
  1. NOREPINEPHRINE. [Suspect]
     Active Substance: NOREPINEPHRINE
  2. NICARDIPINE [Suspect]
     Active Substance: NICARDIPINE

REACTIONS (4)
  - Wrong product administered [None]
  - Wrong patient received product [None]
  - Product dispensing error [None]
  - Product packaging confusion [None]
